FAERS Safety Report 16242192 (Version 2)
Quarter: 2019Q2

REPORT INFORMATION
  Report Type: Spontaneous
  Country: NL (occurrence: NL)
  Receive Date: 20190426
  Receipt Date: 20190523
  Transmission Date: 20190711
  Serious: Yes (Other)
  Sender: FDA-Public Use
  Company Number: NL-TEVA-2019-NL-1042135

PATIENT
  Age: 9 Year
  Sex: Female
  Weight: 36 kg

DRUGS (4)
  1. LIVOCAB NEUSSPRAY [Concomitant]
     Dates: start: 201603
  2. LEVOCETIRIZINE [Concomitant]
     Active Substance: LEVOCETIRIZINE
     Dates: start: 201603
  3. METRONIDAZOL TABLET, 500 MG (MILLIGRAM) [Suspect]
     Active Substance: METRONIDAZOLE
     Indication: DIENTAMOEBA INFECTION
     Dosage: 3X PER DAY 1 TABLET
     Dates: start: 20190314, end: 20190314
  4. MIDAZOLAM NEUSSPRAY [Concomitant]
     Dosage: IF NECESSARY
     Dates: start: 201501

REACTIONS (1)
  - Epilepsy [Recovered/Resolved]

NARRATIVE: CASE EVENT DATE: 20190314
